FAERS Safety Report 12216144 (Version 6)
Quarter: 2016Q4

REPORT INFORMATION
  Report Type: Spontaneous
  Country: US (occurrence: US)
  Receive Date: 20160329
  Receipt Date: 20161223
  Transmission Date: 20170207
  Serious: Yes (Other)
  Sender: FDA-Public Use
  Company Number: PHEH2016US007372

PATIENT
  Sex: Female
  Weight: 65.76 kg

DRUGS (1)
  1. ZOFRAN ODT [Suspect]
     Active Substance: ONDANSETRON HYDROCHLORIDE
     Indication: VOMITING IN PREGNANCY
     Dosage: 8 MG, PRN
     Route: 048
     Dates: start: 20060323, end: 20060430

REACTIONS (10)
  - Maternal exposure during pregnancy [Unknown]
  - Gestational hypertension [Unknown]
  - Pain [Unknown]
  - Anxiety [Unknown]
  - Product use issue [Unknown]
  - Pre-eclampsia [Unknown]
  - Emotional distress [Unknown]
  - Dehydration [Unknown]
  - Premature delivery [Unknown]
  - Injury [Unknown]
